FAERS Safety Report 17034755 (Version 3)
Quarter: 2019Q4

REPORT INFORMATION
  Report Type: Spontaneous
  Country: JP (occurrence: JP)
  Receive Date: 20191115
  Receipt Date: 20191213
  Transmission Date: 20200122
  Serious: Yes (Other)
  Sender: FDA-Public Use
  Company Number: JP-ASTELLAS-2019JP025727

PATIENT
  Age: 3 Decade
  Sex: Male

DRUGS (1)
  1. XOSPATA [Suspect]
     Active Substance: GILTERITINIB
     Indication: ACUTE MYELOID LEUKAEMIA
     Route: 048
     Dates: start: 20191108

REACTIONS (1)
  - Melaena [Recovered/Resolved]

NARRATIVE: CASE EVENT DATE: 20191110
